FAERS Safety Report 8301109-2 (Version None)
Quarter: 2012Q2

REPORT INFORMATION
  Report Type: 
  Country: None (occurrence: None)
  Receive Date: 20120420
  Receipt Date: 20120416
  Transmission Date: 20120825
  Serious: Yes (Death)
  Sender: FDA-Public Use
  Company Number: GB-JNJFOC-20120407056

PATIENT
  Age: 92 Year
  Sex: Male

DRUGS (6)
  1. DALTEPARIN SODIUM [Concomitant]
     Route: 065
  2. TRIMETHOPRIM [Concomitant]
     Route: 065
  3. HALOPERIDOL [Suspect]
     Indication: AGITATION
     Route: 030
     Dates: start: 20120330, end: 20120330
  4. BISOPROLOL FUMARATE [Concomitant]
     Route: 065
  5. SIMVASTATIN [Concomitant]
     Route: 065
  6. ASPIRIN [Concomitant]
     Route: 065

REACTIONS (5)
  - AGONAL RHYTHM [None]
  - VENTRICULAR FIBRILLATION [None]
  - CHEYNE-STOKES RESPIRATION [None]
  - ELECTROCARDIOGRAM QT PROLONGED [None]
  - PULSELESS ELECTRICAL ACTIVITY [None]
